FAERS Safety Report 23602200 (Version 2)
Quarter: 2024Q2

REPORT INFORMATION
  Report Type: Spontaneous
  Country: US (occurrence: US)
  Receive Date: 20240306
  Receipt Date: 20240421
  Transmission Date: 20240716
  Serious: Yes (Other)
  Sender: FDA-Public Use
  Company Number: US-SA-SAC20240305000739

PATIENT
  Age: 50 Year
  Sex: Female
  Weight: 117 kg

DRUGS (2)
  1. DUPIXENT [Suspect]
     Active Substance: DUPILUMAB
     Indication: Systemic lupus erythematosus
     Dosage: 300 MG, QOW
     Route: 058
     Dates: start: 20231109
  2. BENLYSTA [Concomitant]
     Active Substance: BELIMUMAB

REACTIONS (4)
  - Metabolic surgery [Unknown]
  - Hernia [Unknown]
  - Illness [Unknown]
  - Product use in unapproved indication [Unknown]

NARRATIVE: CASE EVENT DATE: 20240201
